FAERS Safety Report 23869825 (Version 1)
Quarter: 2024Q2

REPORT INFORMATION
  Report Type: Spontaneous
  Country: ES (occurrence: None)
  Receive Date: 20240517
  Receipt Date: 20240517
  Transmission Date: 20240716
  Serious: Yes (Death, Hospitalization, Other)
  Sender: FDA-Public Use
  Company Number: 2024A116166

PATIENT
  Age: 78 Year
  Sex: Male

DRUGS (3)
  1. DURVALUMAB [Suspect]
     Active Substance: DURVALUMAB
     Indication: Lung adenocarcinoma stage III
     Route: 042
  2. CARBOPLATIN [Concomitant]
     Active Substance: CARBOPLATIN
     Dosage: 3 CYCLES OF CARBOPLATIN DOSED BY AUC 5 DAY 1
  3. VINORELBINE [Concomitant]
     Active Substance: VINORELBINE TARTRATE
     Dosage: 15 MG/M2 DAYS 1 AND 8, CYCLES EVERY 21 DAYS

REACTIONS (10)
  - Pneumonitis [Fatal]
  - Asthenia [Unknown]
  - Dyspnoea [Unknown]
  - Pyrexia [Unknown]
  - Chills [Unknown]
  - Fungal test positive [Unknown]
  - Cough [Unknown]
  - Tachycardia [Unknown]
  - Hypophonesis [Unknown]
  - Thorax hyperphonesis [Unknown]
